FAERS Safety Report 8980487 (Version 22)
Quarter: 2018Q4

REPORT INFORMATION
  Report Type: Report from Study
  Country: CA (occurrence: CA)
  Receive Date: 20121221
  Receipt Date: 20181114
  Transmission Date: 20190205
  Serious: Yes (Hospitalization, Other)
  Sender: FDA-Public Use
  Company Number: PHHY2012CA117568

PATIENT
  Age: 62 Year
  Sex: Female

DRUGS (11)
  1. GLEEVEC [Suspect]
     Active Substance: IMATINIB MESYLATE
     Indication: GASTROINTESTINAL STROMAL TUMOUR
     Dosage: 400 MG, QD
     Route: 048
     Dates: start: 20100818, end: 20130711
  2. FOSAMAX [Concomitant]
     Active Substance: ALENDRONATE SODIUM
     Indication: PRODUCT USED FOR UNKNOWN INDICATION
     Dosage: UNK
     Route: 065
     Dates: end: 201405
  3. CALCIUM [Concomitant]
     Active Substance: CALCIUM
     Indication: PRODUCT USED FOR UNKNOWN INDICATION
     Dosage: 500 MG, BID (AT LUNCH AND BEDTIME)
     Route: 065
  4. SYNTHROID [Concomitant]
     Active Substance: LEVOTHYROXINE SODIUM
     Indication: PRODUCT USED FOR UNKNOWN INDICATION
     Route: 065
  5. PANTOLOC [Concomitant]
     Active Substance: PANTOPRAZOLE SODIUM
     Indication: PRODUCT USED FOR UNKNOWN INDICATION
     Route: 065
  6. GLEEVEC [Suspect]
     Active Substance: IMATINIB MESYLATE
     Dosage: 400 MG, QD
     Route: 048
     Dates: start: 20130726
  7. CORTISONE [Concomitant]
     Active Substance: CORTISONE\HYDROCORTISONE
     Indication: PRODUCT USED FOR UNKNOWN INDICATION
     Route: 065
  8. VITAMIN D [Concomitant]
     Active Substance: CHOLECALCIFEROL
     Indication: PRODUCT USED FOR UNKNOWN INDICATION
     Dosage: 1000 IU, BID (AT LUNCH AND BEDTIME)
     Route: 065
  9. PROLIA [Concomitant]
     Active Substance: DENOSUMAB
     Indication: PRODUCT USED FOR UNKNOWN INDICATION
     Dosage: UNK
     Route: 065
     Dates: start: 201405
  10. IRON [Concomitant]
     Active Substance: IRON
     Indication: PRODUCT USED FOR UNKNOWN INDICATION
     Dosage: UNK UNK, BID
     Route: 065
  11. PENICILLIN [Concomitant]
     Active Substance: PENICILLIN
     Indication: PROPHYLAXIS
     Dosage: UNK
     Route: 065
     Dates: start: 20150602

REACTIONS (35)
  - White blood cell count decreased [Unknown]
  - Fluid retention [Unknown]
  - Bladder disorder [Unknown]
  - Nausea [Not Recovered/Not Resolved]
  - Cystitis radiation [Unknown]
  - Urinary bladder haemorrhage [Unknown]
  - Bronchitis [Unknown]
  - Tooth infection [Unknown]
  - Lung infection [Unknown]
  - Dysuria [Unknown]
  - Urinary bladder haemorrhage [Recovered/Resolved]
  - Pyrexia [Recovered/Resolved]
  - Burning sensation [Unknown]
  - Immune system disorder [Unknown]
  - Productive cough [Unknown]
  - Haematuria [Not Recovered/Not Resolved]
  - Labelled drug-food interaction medication error [Unknown]
  - Migraine with aura [Unknown]
  - Vision blurred [Unknown]
  - Dyspnoea [Recovering/Resolving]
  - Haemorrhage urinary tract [Not Recovered/Not Resolved]
  - Urinary tract infection [Unknown]
  - Arthritis [Unknown]
  - Anaemia [Unknown]
  - Dizziness [Unknown]
  - Dry eye [Unknown]
  - Vomiting [Not Recovered/Not Resolved]
  - Renal disorder [Unknown]
  - Haemoptysis [Unknown]
  - Pain in extremity [Recovering/Resolving]
  - Epistaxis [Unknown]
  - Asthma [Unknown]
  - Secretion discharge [Not Recovered/Not Resolved]
  - Pollakiuria [Unknown]
  - Pulmonary mass [Unknown]

NARRATIVE: CASE EVENT DATE: 201106
